FAERS Safety Report 16883345 (Version 3)
Quarter: 2021Q2

REPORT INFORMATION
  Report Type: Other
  Country: IT (occurrence: IT)
  Receive Date: 20191004
  Receipt Date: 20210510
  Transmission Date: 20210716
  Serious: Yes (Other)
  Sender: FDA-Public Use
  Company Number: IT-CELLTRION INC.-2019IT024923

PATIENT

DRUGS (13)
  1. CYCLOPHOSPHAMIDE. [Suspect]
     Active Substance: CYCLOPHOSPHAMIDE
     Indication: BREAST CANCER
     Dosage: 926 MG EVERY 3 WEEKS (MOST RECENT DOSE: 10MAY2019)
     Route: 042
     Dates: start: 20190308
  2. LASIX [Concomitant]
     Active Substance: FUROSEMIDE
     Dosage: ONGOING = NOT CHECKED
     Dates: start: 20190806, end: 20190930
  3. METILPREDNISOLONE [Concomitant]
     Active Substance: METHYLPREDNISOLONE
     Dosage: ONGOING = CHECKED
     Dates: start: 20190612, end: 20190827
  4. ONDASETRON [ONDANSETRON] [Concomitant]
     Active Substance: ONDANSETRON
     Dosage: ONGOING = CHECKED
     Dates: start: 20190612, end: 20190827
  5. TRASTUZUMAB (UNKNOWN) [Suspect]
     Active Substance: TRASTUZUMAB
     Indication: BREAST CANCER
     Dosage: 4 MG/KG (MOST RECENT DOSE PRIOR TO THE EVENT: 18JUN2019)
     Route: 042
     Dates: start: 20190612
  6. PACLITAXEL. [Suspect]
     Active Substance: PACLITAXEL
     Indication: BREAST CANCER
     Dosage: 80 MG/M2 EVERY WEEK (MOST RECENT DOSE PRIOR TO THE EVENT: 23JUL2019 AND 06AUG2019)
     Route: 042
     Dates: start: 20190612
  7. OMEPRAZOL [OMEPRAZOLE] [Concomitant]
     Active Substance: OMEPRAZOLE
     Dosage: ONGOING = CHECKED
     Dates: start: 20190308, end: 20190903
  8. DELTACORTENE [Concomitant]
     Active Substance: PREDNISONE
     Dosage: ONGOING = CHECKED
     Dates: start: 20190611, end: 20190827
  9. CLORFENAMINA [CHLORPHENAMINE] [Concomitant]
     Active Substance: CHLORPHENIRAMINE
     Dosage: ONGOING = CHECKED
     Dates: start: 20190612, end: 20190827
  10. PLASIL [METOCLOPRAMIDE] [Concomitant]
     Active Substance: METOCLOPRAMIDE
     Dosage: ONGOING = CHECKED
     Dates: start: 20190613, end: 20190903
  11. EPIRUBICIN [Suspect]
     Active Substance: EPIRUBICIN
     Indication: BREAST CANCER
     Dosage: 138 MG EVERY 3 WEEKS (MOST RECENT DOSE: 10MAY2019)
     Route: 042
     Dates: start: 20190308
  12. LASIX [Concomitant]
     Active Substance: FUROSEMIDE
     Dosage: ONGOING = NOT CHECKED
     Dates: start: 20190716, end: 20190723
  13. RANITIDINE. [Concomitant]
     Active Substance: RANITIDINE
     Dosage: ONGOING = CHECKED
     Dates: start: 20190612, end: 20190827

REACTIONS (2)
  - Neurotoxicity [Recovered/Resolved]
  - Neurotoxicity [Recovered/Resolved]

NARRATIVE: CASE EVENT DATE: 20190723
